FAERS Safety Report 7203707-6 (Version None)
Quarter: 2010Q4

REPORT INFORMATION
  Report Type: 
  Country: None (occurrence: None)
  Receive Date: 20101230
  Receipt Date: 20101217
  Transmission Date: 20110411
  Serious: Yes (Other)
  Sender: FDA-Public Use
  Company Number: PHHY2010US86291

PATIENT
  Sex: Female

DRUGS (6)
  1. LESCOL XL [Suspect]
     Indication: BLOOD CHOLESTEROL INCREASED
     Dosage: 80 MG, QD
     Route: 048
  2. LIPITOR [Suspect]
     Dosage: UNK
  3. CRESTOR [Suspect]
     Dosage: UNK
  4. WATER PILLS [Concomitant]
     Dosage: UNK
  5. AMLODIPINE [Concomitant]
     Dosage: UNK
  6. SYNTHROID [Concomitant]
     Dosage: 100 MG, UNK

REACTIONS (8)
  - DEPRESSION [None]
  - FEELING ABNORMAL [None]
  - HAND DEFORMITY [None]
  - MIDDLE INSOMNIA [None]
  - OEDEMA PERIPHERAL [None]
  - RHINORRHOEA [None]
  - SWOLLEN TONGUE [None]
  - WEIGHT INCREASED [None]
